FAERS Safety Report 7457543-6 (Version None)
Quarter: 2011Q2

REPORT INFORMATION
  Report Type: 
  Country: None (occurrence: None)
  Receive Date: 20110504
  Receipt Date: 20110502
  Transmission Date: 20111010
  Serious: Yes (Death, Hospitalization)
  Sender: FDA-Public Use
  Company Number: FR-SANOFI-AVENTIS-2011SA026884

PATIENT
  Age: 84 Year
  Sex: Female

DRUGS (11)
  1. OFLOCET [Suspect]
     Dosage: DOSE:10 MILLIGRAM(S)/MILLILITRE
     Route: 042
     Dates: start: 20110206, end: 20110213
  2. ROCEPHIN [Suspect]
     Route: 042
     Dates: start: 20110207, end: 20110217
  3. RIVOTRIL [Concomitant]
     Route: 065
     Dates: start: 20101230, end: 20110218
  4. LOVENOX [Suspect]
     Route: 058
     Dates: start: 20110208, end: 20110218
  5. CORVASAL [Concomitant]
     Route: 065
     Dates: end: 20110218
  6. EFFERALGAN [Concomitant]
     Route: 065
     Dates: end: 20110218
  7. ESOMEPRAZOLE [Concomitant]
     Route: 065
     Dates: end: 20110218
  8. LACTULOSE [Concomitant]
     Route: 065
     Dates: start: 20101230, end: 20110218
  9. LASIX [Suspect]
     Route: 048
     Dates: start: 20110206, end: 20110218
  10. DISCOTRINE [Concomitant]
     Route: 065
  11. EFFEXOR [Concomitant]
     Route: 065
     Dates: start: 20101230, end: 20110218

REACTIONS (1)
  - TOXIC EPIDERMAL NECROLYSIS [None]
